FAERS Safety Report 14262815 (Version 2)
Quarter: 2017Q4

REPORT INFORMATION
  Report Type: Report from Study
  Country: CA (occurrence: CA)
  Receive Date: 20171208
  Receipt Date: 20171211
  Transmission Date: 20180321
  Serious: Yes (Other)
  Sender: FDA-Public Use
  Company Number: CA-JNJFOC-20171205926

PATIENT
  Sex: Female

DRUGS (5)
  1. IRON [Concomitant]
     Active Substance: IRON
     Route: 065
  2. PANTOPRAZOLE [Concomitant]
     Active Substance: PANTOPRAZOLE
     Route: 065
  3. VITAMIN D [Concomitant]
     Active Substance: CHOLECALCIFEROL
     Route: 065
  4. VITAMINA B12 [Concomitant]
     Route: 065
  5. STELARA [Suspect]
     Active Substance: USTEKINUMAB
     Indication: CROHN^S DISEASE
     Dosage: STRENGTH = 130 MG
     Route: 042
     Dates: start: 20171013, end: 2017

REACTIONS (10)
  - Dyspnoea [Recovering/Resolving]
  - Otorrhoea [Recovering/Resolving]
  - Sciatica [Recovering/Resolving]
  - Pyoderma [Recovering/Resolving]
  - Sinus congestion [Recovering/Resolving]
  - Weight fluctuation [Recovering/Resolving]
  - Eye infection [Recovering/Resolving]
  - Drug ineffective [Unknown]
  - Flatulence [Recovering/Resolving]
  - Peripheral swelling [Recovering/Resolving]

NARRATIVE: CASE EVENT DATE: 2017
